FAERS Safety Report 4325304-2 (Version None)
Quarter: 2004Q1

REPORT INFORMATION
  Report Type: 
  Country: None (occurrence: None)
  Receive Date: 20040323
  Receipt Date: 20040315
  Transmission Date: 20041129
  Serious: Yes (Death)
  Sender: FDA-Public Use
  Company Number: 2004196593AU

PATIENT
  Age: 59 Year
  Sex: Female
  Weight: 78.2 kg

DRUGS (7)
  1. IDARUBICIN HCL [Suspect]
     Indication: ACUTE MYELOID LEUKAEMIA
     Dosage: 15 MG, QD; IV
     Route: 042
     Dates: start: 20040109, end: 20040111
  2. CYTARABINE [Suspect]
     Indication: ACUTE MYELOID LEUKAEMIA
     Dosage: 5200 MG, BID, D 1,3,5,7; IV
     Route: 042
     Dates: start: 20040109, end: 20040116
  3. ETOPOSIDE [Suspect]
     Indication: ACUTE MYELOID LEUKAEMIA
     Dosage: 130 MG, QD, D 1-7, IV
     Route: 042
     Dates: start: 20040109, end: 20040115
  4. COMPARATOR-FILGRASTIM(FILGRASTIM) [Suspect]
     Indication: WHITE BLOOD CELL COUNT DECREASED
     Dosage: 300 UG, QD; SUBCUTANEOUS
     Route: 058
     Dates: start: 20040117, end: 20040124
  5. MEROPENEM [Concomitant]
  6. FRUSEMIDE [Concomitant]
  7. ALLOPURINOL [Concomitant]

REACTIONS (9)
  - CARDIAC ARREST [None]
  - CARDIO-RESPIRATORY ARREST [None]
  - ENTEROCOCCAL INFECTION [None]
  - FEBRILE NEUTROPENIA [None]
  - FUNGAL INFECTION [None]
  - GENERAL PHYSICAL HEALTH DETERIORATION [None]
  - PRODUCTIVE COUGH [None]
  - RESPIRATORY DISTRESS [None]
  - SCEDOSPORIUM INFECTION [None]
